FAERS Safety Report 8483777-8 (Version None)
Quarter: 2012Q3

REPORT INFORMATION
  Report Type: 
  Country: None (occurrence: None)
  Receive Date: 20120703
  Receipt Date: 20120627
  Transmission Date: 20120928
  Serious: No
  Sender: FDA-Public Use
  Company Number: US-BIOGENIDEC-2012BI020319

PATIENT
  Age: 57 Year
  Sex: Female

DRUGS (1)
  1. TYSABRI [Suspect]
     Indication: MULTIPLE SCLEROSIS
     Route: 042
     Dates: start: 20120227, end: 20120409

REACTIONS (4)
  - OEDEMA PERIPHERAL [None]
  - HYPERSENSITIVITY [None]
  - OEDEMA MOUTH [None]
  - URTICARIA [None]
